FAERS Safety Report 9120905 (Version 8)
Quarter: 2013Q3

REPORT INFORMATION
  Report Type: Report from Study
  Country: US (occurrence: US)
  Receive Date: 20130226
  Receipt Date: 20130701
  Transmission Date: 20140515
  Serious: Yes (Other)
  Sender: FDA-Public Use
  Company Number: US-VERTEX PHARMACEUTICALS INC.-2013-002606

PATIENT
  Age: 59 Year
  Sex: Female
  Weight: 65 kg

DRUGS (3)
  1. VX-950 (TELAPREVIR) [Suspect]
     Indication: HEPATITIS C
     Dosage: 750 MG, TID
     Route: 048
     Dates: start: 20130210, end: 20130504
  2. PEGASYS [Suspect]
     Indication: HEPATITIS C
     Dosage: 180 ?G, QW
     Route: 058
     Dates: start: 20130210
  3. RIBAPAK [Suspect]
     Indication: HEPATITIS C
     Dosage: 600MG AM, 400MG PM
     Route: 048
     Dates: start: 20130210

REACTIONS (15)
  - Rash generalised [Recovered/Resolved]
  - Diarrhoea [Recovered/Resolved]
  - Depression [Recovered/Resolved]
  - Weight increased [Not Recovered/Not Resolved]
  - Dyspnoea [Not Recovered/Not Resolved]
  - Sinus congestion [Not Recovered/Not Resolved]
  - Migraine [Not Recovered/Not Resolved]
  - Blood glucose increased [Not Recovered/Not Resolved]
  - Apathy [Unknown]
  - Cough [Not Recovered/Not Resolved]
  - Somnolence [Not Recovered/Not Resolved]
  - Acne [Not Recovered/Not Resolved]
  - Fatigue [Not Recovered/Not Resolved]
  - Anaemia [Not Recovered/Not Resolved]
  - Nausea [Not Recovered/Not Resolved]
